FAERS Safety Report 8442871-8 (Version None)
Quarter: 2012Q2

REPORT INFORMATION
  Report Type: 
  Country: None (occurrence: None)
  Receive Date: 20120323
  Receipt Date: 20110609
  Transmission Date: 20120825
  Serious: Yes (Hospitalization)
  Sender: FDA-Public Use
  Company Number: 163-21880-11061468

PATIENT
  Age: 65 Year
  Sex: Female

DRUGS (8)
  1. ZOMETA [Concomitant]
  2. ASPIRIN [Concomitant]
  3. ZOLPIDEM [Concomitant]
  4. ALBUTEROL [Concomitant]
  5. REVLIMID [Suspect]
     Indication: MULTIPLE MYELOMA
     Dosage: 25 MG, QD, X 21 DAYS/OFF 7 DAYS, PO
     Route: 048
     Dates: start: 20110514, end: 20110610
  6. CALCIUM CARBONATE [Concomitant]
  7. CENTRUM (CENTRUM) [Concomitant]
  8. REVLIMID [Suspect]

REACTIONS (6)
  - FATIGUE [None]
  - ASTHENIA [None]
  - PNEUMONIA [None]
  - MULTIPLE MYELOMA [None]
  - DYSPNOEA [None]
  - SWELLING FACE [None]
